FAERS Safety Report 4739338-7 (Version None)
Quarter: 2005Q3

REPORT INFORMATION
  Report Type: 
  Country: None (occurrence: None)
  Receive Date: 20050810
  Receipt Date: 20050125
  Transmission Date: 20060218
  Serious: Yes (Other)
  Sender: FDA-Public Use
  Company Number: 05-062

PATIENT
  Age: 25 Year
  Sex: Female
  Weight: 54.5 kg

DRUGS (1)
  1. PAROXETINE HCL [Suspect]
     Indication: DEPRESSION
     Dosage: 20MG UNKNOWN
     Route: 048
     Dates: end: 20050121

REACTIONS (3)
  - HEADACHE [None]
  - VISION BLURRED [None]
  - VISUAL ACUITY REDUCED [None]
